FAERS Safety Report 7979551-9 (Version None)
Quarter: 2011Q4

REPORT INFORMATION
  Report Type: 
  Country: None (occurrence: None)
  Receive Date: 20111214
  Receipt Date: 20111205
  Transmission Date: 20120403
  Serious: Yes (Other)
  Sender: FDA-Public Use
  Company Number: FR-MILLENNIUM PHARMACEUTICALS, INC.-2011-04745

PATIENT

DRUGS (15)
  1. MELPHALAN HYDROCHLORIDE [Suspect]
     Indication: MULTIPLE MYELOMA
     Dosage: 11.5 MG, UNK
     Route: 048
     Dates: start: 20100920, end: 20110805
  2. BECLOMETHASONE DIPROPIONATE [Concomitant]
     Indication: ASTHMA
     Dosage: 1 MG, BID
     Route: 048
  3. VELCADE [Suspect]
     Indication: MULTIPLE MYELOMA
     Dosage: 0.7 MG/M2, 1/WEEK
     Route: 042
     Dates: start: 20100920, end: 20110809
  4. LYRICA [Concomitant]
     Dosage: 150 MG, BID
     Route: 048
     Dates: start: 20101207
  5. ZOMETA [Concomitant]
     Indication: BONE LESION
     Dosage: 4 MG, UNK
     Route: 042
     Dates: start: 20101109
  6. EPOETIN ZETA [Concomitant]
     Dosage: UNK
     Route: 058
     Dates: start: 20110607, end: 20111009
  7. CRESTOR [Concomitant]
     Indication: HYPERCHOLESTEROLAEMIA
     Dosage: UNK
     Route: 048
  8. VASTAREL [Concomitant]
     Indication: DIZZINESS
     Dosage: UNK
     Route: 048
  9. FORADIL                            /00958001/ [Concomitant]
     Indication: ASTHMA
     Dosage: UNK
     Route: 048
  10. SMECTA                             /00837601/ [Concomitant]
     Dosage: UNK
     Route: 048
     Dates: start: 20110111
  11. LEXOMIL [Concomitant]
     Route: 048
  12. ZYLORIC                            /00003301/ [Concomitant]
     Indication: HYPERURICAEMIA
     Dosage: UNK
     Route: 048
  13. PREDNISONE TAB [Suspect]
     Indication: MULTIPLE MYELOMA
     Dosage: 100 MG, UNK
     Route: 048
     Dates: start: 20100920, end: 20110805
  14. TEMESTA                            /00273201/ [Concomitant]
     Dosage: UNK
     Route: 048
  15. IMODIUM                            /00384302/ [Concomitant]
     Dosage: UNK
     Route: 048
     Dates: start: 20101221

REACTIONS (1)
  - MYELODYSPLASTIC SYNDROME [None]
